FAERS Safety Report 4708775-9 (Version None)
Quarter: 2005Q3

REPORT INFORMATION
  Report Type: 
  Country: None (occurrence: None)
  Receive Date: 20050705
  Receipt Date: 20050621
  Transmission Date: 20060218
  Serious: Yes (Hospitalization)
  Sender: FDA-Public Use
  Company Number: 2005092355

PATIENT
  Age: 68 Year
  Sex: Male

DRUGS (4)
  1. PENICILLIN G PROCAINE [Suspect]
     Indication: ENDOCARDITIS
     Dosage: 20 (1 IN 1 D)
  2. GENTAMICIN [Suspect]
     Indication: ENDOCARDITIS
  3. CLARITHROMYCIN [Suspect]
     Indication: ULCER
     Dosage: 2 GRAM (1 GRAM, 2 IN 1 D)
  4. AMOXICILLIN [Suspect]
     Indication: ULCER
     Dosage: 1000 MG (500 MG, 2 IN 1 D)

REACTIONS (9)
  - ACTIVATED PARTIAL THROMBOPLASTIN TIME PROLONGED [None]
  - BLEEDING TIME PROLONGED [None]
  - BLOOD CREATININE INCREASED [None]
  - EPISTAXIS [None]
  - HAEMORRHAGE [None]
  - INTESTINAL HAEMORRHAGE [None]
  - OESOPHAGEAL HAEMORRHAGE [None]
  - PLATELET AGGREGATION DECREASED [None]
  - ULCER [None]
